FAERS Safety Report 24195134 (Version 2)
Quarter: 2024Q3

REPORT INFORMATION
  Report Type: Spontaneous
  Country: US (occurrence: US)
  Receive Date: 20240809
  Receipt Date: 20240926
  Transmission Date: 20241017
  Serious: Yes (Other)
  Sender: ANI
  Company Number: US-ANIPHARMA-2024-US-028201

PATIENT
  Age: 60 Year
  Sex: Female

DRUGS (42)
  1. CORTICOTROPIN [Suspect]
     Active Substance: CORTICOTROPIN
     Indication: Polymyositis
     Dosage: 80 UNITS  SUBCUTANEOUS TWO TIMES PER WEEK, ALSO THE 1 ML VIAL
     Route: 058
  2. SYMBICORT [Concomitant]
     Active Substance: BUDESONIDE\FORMOTEROL FUMARATE DIHYDRATE
  3. PROBIOTICS NOS [Concomitant]
     Active Substance: PROBIOTICS NOS
  4. DEXLANSOPRAZOLE [Concomitant]
     Active Substance: DEXLANSOPRAZOLE
  5. FLECAINIDE ACETATE [Concomitant]
     Active Substance: FLECAINIDE ACETATE
  6. ELIQUIS [Concomitant]
     Active Substance: APIXABAN
  7. FUROSEMIDE [Concomitant]
     Active Substance: FUROSEMIDE
  8. HYDROCORTISONE [Concomitant]
     Active Substance: HYDROCORTISONE\HYDROCORTISONE ACETATE
  9. MONTELUKAST SODIUM [Concomitant]
     Active Substance: MONTELUKAST\MONTELUKAST SODIUM
  10. CAMPHOTREX [Concomitant]
     Active Substance: CAMPHOR (SYNTHETIC)\MENTHOL
  11. ALBUTEROL [Concomitant]
     Active Substance: ALBUTEROL
  12. IPRATROPIUM BROMIDE [Concomitant]
     Active Substance: IPRATROPIUM BROMIDE\IPRATROPIUM BROMIDE ANHYDROUS
  13. DICLOFENAC SODIUM [Concomitant]
     Active Substance: DICLOFENAC\DICLOFENAC SODIUM
  14. ZINC [Concomitant]
     Active Substance: ZINC
  15. DULCOLAX CHEWY FRUIT BITE [Concomitant]
  16. BENZONATATE [Concomitant]
     Active Substance: BENZONATATE
  17. NOVOLOG [Concomitant]
     Active Substance: INSULIN ASPART
  18. CARVEDILOL [Concomitant]
     Active Substance: CARVEDILOL
  19. POTASSIUM CHLORIDE [Concomitant]
     Active Substance: POTASSIUM CHLORIDE
  20. EZETIMIBE [Concomitant]
     Active Substance: EZETIMIBE
  21. VITAMIN C [Concomitant]
     Active Substance: ASCORBIC ACID
  22. SUPER B-COMPLEX [Concomitant]
  23. TIGER BALM EXTRA STRENGTH [Concomitant]
  24. BIOFREEZE [Concomitant]
     Active Substance: MENTHOL
  25. LACTULOSE [Concomitant]
     Active Substance: LACTULOSE
  26. MUPIROCIN [Concomitant]
     Active Substance: MUPIROCIN
  27. FERROUS GLUCONATE [Concomitant]
     Active Substance: FERROUS GLUCONATE
  28. SPIRIVA [Concomitant]
     Active Substance: TIOTROPIUM BROMIDE MONOHYDRATE
  29. LEVOCETIRIZINE DIHYDROCHLORIDE [Concomitant]
     Active Substance: LEVOCETIRIZINE DIHYDROCHLORIDE
  30. PREGABALIN [Concomitant]
     Active Substance: PREGABALIN
  31. FAMOTIDINE [Concomitant]
     Active Substance: FAMOTIDINE
  32. VITAMIN D3 [Concomitant]
     Active Substance: CHOLECALCIFEROL
  33. RESTASIS [Concomitant]
     Active Substance: CYCLOSPORINE
  34. AMOXICILLIN [Concomitant]
     Active Substance: AMOXICILLIN
  35. LANTUS [Concomitant]
     Active Substance: INSULIN GLARGINE
  36. LIDOCAINE [Concomitant]
     Active Substance: LIDOCAINE
  37. SUCRALFATE [Concomitant]
     Active Substance: SUCRALFATE
  38. PROMETHAZINE HYDROCHLORIDE [Concomitant]
     Active Substance: PROMETHAZINE HYDROCHLORIDE
  39. BUTALBITAL AND ACETAMINOPHEN [Concomitant]
     Active Substance: ACETAMINOPHEN\BUTALBITAL
  40. TYLENOL EXTRA STRENGTH [Concomitant]
     Active Substance: ACETAMINOPHEN
  41. CLOBETASOL PROPIONATE [Concomitant]
     Active Substance: CLOBETASOL PROPIONATE
  42. REFRESH-PM [Concomitant]

REACTIONS (5)
  - Left ventricular hypertrophy [Unknown]
  - Injection site pruritus [Unknown]
  - Atelectasis [Unknown]
  - Interstitial lung disease [Unknown]
  - Condition aggravated [Unknown]

NARRATIVE: CASE EVENT DATE: 20240501
